FAERS Safety Report 6695763-9 (Version None)
Quarter: 2010Q2

REPORT INFORMATION
  Report Type: 
  Country: None (occurrence: None)
  Receive Date: 20100421
  Receipt Date: 20100416
  Transmission Date: 20101027
  Serious: Yes (Death)
  Sender: FDA-Public Use
  Company Number: 2010SP021887

PATIENT
  Age: 80 Year
  Sex: Female

DRUGS (3)
  1. EPTIFIBATIDE (EPTIFIBATIDE / 01360901 / ) [Suspect]
     Indication: ACUTE MYOCARDIAL INFARCTION
     Dates: start: 20100413
  2. ASPIRIN [Suspect]
     Indication: ACUTE MYOCARDIAL INFARCTION
     Dosage: 300 MG; QD;
     Dates: start: 20100413
  3. CLOPIDOGREL [Suspect]
     Indication: ACUTE MYOCARDIAL INFARCTION
     Dosage: 300 MG; QD;
     Dates: start: 20100413

REACTIONS (1)
  - ACUTE MYOCARDIAL INFARCTION [None]
